FAERS Safety Report 11850515 (Version 1)
Quarter: 2015Q4

REPORT INFORMATION
  Report Type: Spontaneous
  Country: US (occurrence: US)
  Receive Date: 20151218
  Receipt Date: 20151218
  Transmission Date: 20160305
  Serious: No
  Sender: FDA-Public Use
  Company Number: US-JNJFOC-20151102303

PATIENT
  Age: 61 Year
  Sex: Female
  Weight: 65.77 kg

DRUGS (1)
  1. SUDAFED CONGESTION MS [Suspect]
     Active Substance: PSEUDOEPHEDRINE HYDROCHLORIDE
     Indication: SINUS HEADACHE
     Route: 048
     Dates: start: 20151101, end: 20151101

REACTIONS (6)
  - Dizziness [Recovered/Resolved]
  - Nausea [Recovered/Resolved]
  - Product use issue [Recovered/Resolved]
  - Balance disorder [Recovered/Resolved]
  - Palpitations [Recovered/Resolved]
  - Disorientation [Recovered/Resolved]

NARRATIVE: CASE EVENT DATE: 20151101
